FAERS Safety Report 14239184 (Version 2)
Quarter: 2017Q4

REPORT INFORMATION
  Report Type: Spontaneous
  Country: FR (occurrence: FR)
  Receive Date: 20171130
  Receipt Date: 20171222
  Transmission Date: 20180321
  Serious: Yes (Death, Hospitalization, Other)
  Sender: FDA-Public Use
  Company Number: FR-BAYER-2017-223220

PATIENT
  Age: 64 Year
  Sex: Female

DRUGS (9)
  1. ALDACTONE [Concomitant]
     Active Substance: SPIRONOLACTONE
     Dosage: UNK
  2. OMEPRAZOLE. [Concomitant]
     Active Substance: OMEPRAZOLE
     Dosage: 20 MG, QD
  3. PARACETAMOL [Concomitant]
     Active Substance: ACETAMINOPHEN
     Dosage: 1 G, TID
  4. RAMIPRIL. [Concomitant]
     Active Substance: RAMIPRIL
     Dosage: 5 MG, QD
  5. NEXAVAR [Suspect]
     Active Substance: SORAFENIB
     Dosage: UNK
     Route: 048
     Dates: start: 2017, end: 2017
  6. RUPATADINE [Concomitant]
     Active Substance: RUPATADINE
     Dosage: 10 MG, QD
  7. NEXAVAR [Suspect]
     Active Substance: SORAFENIB
     Dosage: 400 MG, BID
     Route: 048
     Dates: start: 20170718, end: 20171016
  8. FORLAX [Concomitant]
     Active Substance: POLYETHYLENE GLYCOL 4000
     Dosage: 1 OR 2, MORNING
  9. INNOVAIR [Concomitant]
     Active Substance: BECLOMETHASONE DIPROPIONATE\FORMOTEROL
     Dosage: UNK

REACTIONS (34)
  - Erysipelas [None]
  - Hypothermia [Fatal]
  - Blood pressure decreased [Fatal]
  - Tachypnoea [Fatal]
  - Necrotising fasciitis [Fatal]
  - Disseminated intravascular coagulation [Fatal]
  - Skin necrosis [None]
  - Oedema peripheral [None]
  - Skin lesion [None]
  - Palmar-plantar erythrodysaesthesia syndrome [None]
  - Fall [None]
  - Altered state of consciousness [Fatal]
  - Contusion [None]
  - Peripheral coldness [Fatal]
  - Thrombocytopenia [Fatal]
  - Purpura [None]
  - Fatigue [None]
  - Red blood cell sedimentation rate increased [Fatal]
  - Skin wound [None]
  - Limb injury [None]
  - Limb injury [None]
  - Blister rupture [None]
  - Hypotension [Fatal]
  - Dermatitis bullous [None]
  - Diarrhoea [Recovering/Resolving]
  - Skin exfoliation [None]
  - Blood pressure diastolic increased [None]
  - Septic shock [Fatal]
  - Confusional state [Fatal]
  - General physical health deterioration [Fatal]
  - Wound secretion [None]
  - Blister [None]
  - Purpura [None]
  - Acidosis [Fatal]

NARRATIVE: CASE EVENT DATE: 2017
